FAERS Safety Report 16234652 (Version 1)
Quarter: 2019Q2

REPORT INFORMATION
  Report Type: Spontaneous
  Country: SE (occurrence: SE)
  Receive Date: 20190424
  Receipt Date: 20190424
  Transmission Date: 20190711
  Serious: Yes (Other)
  Sender: FDA-Public Use
  Company Number: SE-MYLANLABS-2019M1037727

PATIENT
  Age: 78 Year
  Sex: Female

DRUGS (7)
  1. NIFEREX                            /00023531/ [Concomitant]
     Dosage: UNK
  2. CLOBETASOL PROPIONATE. [Concomitant]
     Active Substance: CLOBETASOL PROPIONATE
     Dosage: UNK
  3. SOLVEZINK [Concomitant]
     Dosage: UNK
  4. CLOBETASOL [Concomitant]
     Active Substance: CLOBETASOL
     Dosage: UNK
  5. IMATINIB. [Suspect]
     Active Substance: IMATINIB MESYLATE
     Indication: GASTRIC SARCOMA
     Dosage: UNK
     Route: 048
     Dates: start: 20171211
  6. GLIVEC [Suspect]
     Active Substance: IMATINIB MESYLATE
     Indication: GASTRIC SARCOMA
     Dosage: UNK
     Route: 048
     Dates: start: 20061112, end: 20171211
  7. CREON [Concomitant]
     Active Substance: PANCRELIPASE AMYLASE\PANCRELIPASE LIPASE\PANCRELIPASE PROTEASE
     Dosage: UNK

REACTIONS (1)
  - Exposed bone in jaw [Not Recovered/Not Resolved]

NARRATIVE: CASE EVENT DATE: 20181001
